FAERS Safety Report 7043578-4 (Version None)
Quarter: 2010Q4

REPORT INFORMATION
  Report Type: 
  Country: None (occurrence: None)
  Receive Date: 20101013
  Receipt Date: 20101004
  Transmission Date: 20110411
  Serious: Yes (Death)
  Sender: FDA-Public Use
  Company Number: A0885534A

PATIENT
  Age: 19 Year
  Sex: Male

DRUGS (4)
  1. FLOLAN [Suspect]
     Indication: PULMONARY ARTERIAL HYPERTENSION
     Dosage: 2NGKM UNKNOWN
     Route: 042
     Dates: start: 20100928
  2. FLOLAN [Suspect]
     Route: 042
     Dates: start: 20100929
  3. FLOLAN [Suspect]
     Route: 042
     Dates: start: 20100930, end: 20101001
  4. FLOLAN [Suspect]
     Indication: PULMONARY ARTERIAL HYPERTENSION
     Route: 042
     Dates: start: 20100928

REACTIONS (1)
  - DEATH [None]
